FAERS Safety Report 9844038 (Version 1)
Quarter: 2014Q1

REPORT INFORMATION
  Report Type: Spontaneous
  Country: US (occurrence: US)
  Receive Date: 20140126
  Receipt Date: 20140126
  Transmission Date: 20141002
  Serious: No
  Sender: FDA-Public Use
  Company Number: US-009507513-1401USA010994

PATIENT
  Sex: Female

DRUGS (1)
  1. SAPHRIS [Suspect]
     Indication: INSOMNIA
     Dosage: 10 MG, BID
     Route: 060
     Dates: start: 201301

REACTIONS (1)
  - Personality change [Not Recovered/Not Resolved]
